FAERS Safety Report 16608269 (Version 1)
Quarter: 2019Q3

REPORT INFORMATION
  Report Type: Spontaneous
  Country: AX (occurrence: AX)
  Receive Date: 20190719
  Receipt Date: 20190719
  Transmission Date: 20191004
  Serious: Yes (Hospitalization)
  Sender: FDA-Public Use
  Company Number: None

PATIENT
  Age: 73 Year
  Sex: Male
  Weight: 99 kg

DRUGS (10)
  1. DOXAZOSIN [Concomitant]
     Active Substance: DOXAZOSIN MESYLATE
  2. ASPIRIN LOW EC [Concomitant]
  3. SODIUM BICAR [Concomitant]
  4. CARVEDILOL. [Concomitant]
     Active Substance: CARVEDILOL
  5. ATORVASTATIN [Concomitant]
     Active Substance: ATORVASTATIN
  6. TRAMADOL. [Concomitant]
     Active Substance: TRAMADOL
  7. LEVOTHYROXIN [Concomitant]
     Active Substance: LEVOTHYROXINE
  8. MELOXICAM. [Concomitant]
     Active Substance: MELOXICAM
  9. PENTOXIFYLLINE ER ORAL TABLET EXTENDED RELEASE 400MG [Suspect]
     Active Substance: PENTOXIFYLLINE
     Indication: PULMONARY VASCULAR DISORDER
     Dosage: ?          QUANTITY:1 TABLET(S);?
     Route: 048
     Dates: start: 20190705, end: 20190708
  10. ISOSORB MONO ER [Concomitant]
     Active Substance: ISOSORBIDE MONONITRATE

REACTIONS (4)
  - Swollen tongue [None]
  - Speech disorder [None]
  - Peripheral swelling [None]
  - Swelling face [None]

NARRATIVE: CASE EVENT DATE: 20190708
